FAERS Safety Report 7948266-5 (Version None)
Quarter: 2011Q4

REPORT INFORMATION
  Report Type: 
  Country: None (occurrence: None)
  Receive Date: 20111130
  Receipt Date: 20111122
  Transmission Date: 20120403
  Serious: No
  Sender: FDA-Public Use
  Company Number: US-PFIZER INC-2011243987

PATIENT
  Sex: Male
  Weight: 90.703 kg

DRUGS (6)
  1. LEVOTHYROXINE [Concomitant]
     Dosage: 175 UG, EVERY OTHER DAY (QOD)
  2. ADDERALL 5 [Concomitant]
     Dosage: 5 MG, UNK
  3. LEVOTHYROXINE [Concomitant]
     Dosage: 150 UG, EVERY OTHER DAY (QOD)
  4. FISH OIL [Concomitant]
     Dosage: UNK
  5. ZALEPLON [Suspect]
     Indication: INSOMNIA
     Dosage: 10 MG, AS NEEDED
     Route: 048
     Dates: start: 20110816
  6. CALCIUM [Concomitant]
     Dosage: UNK

REACTIONS (1)
  - DRUG INEFFECTIVE [None]
